FAERS Safety Report 5501128-5 (Version None)
Quarter: 2007Q4

REPORT INFORMATION
  Report Type: 
  Country: None (occurrence: None)
  Receive Date: 20071029
  Receipt Date: 20071017
  Transmission Date: 20080405
  Serious: Yes (Other)
  Sender: FDA-Public Use
  Company Number: CA-PFIZER INC-2007079598

PATIENT
  Age: 70 Year
  Sex: Female
  Weight: 58.5 kg

DRUGS (5)
  1. LYRICA [Suspect]
     Indication: NEURALGIA
     Route: 048
     Dates: start: 20051101, end: 20070801
  2. OMEPRAZOLE [Concomitant]
     Route: 048
  3. ALENDRONATE SODIUM [Concomitant]
     Route: 048
  4. MELOXICAM [Concomitant]
     Route: 048
  5. TEMAZEPAM [Concomitant]
     Route: 048

REACTIONS (5)
  - NEURALGIA [None]
  - OEDEMA PERIPHERAL [None]
  - POLYMYALGIA RHEUMATICA [None]
  - RED BLOOD CELL SEDIMENTATION RATE INCREASED [None]
  - WEIGHT DECREASED [None]
